FAERS Safety Report 8495558-X (Version None)
Quarter: 2012Q3

REPORT INFORMATION
  Report Type: 
  Country: None (occurrence: None)
  Receive Date: 20120709
  Receipt Date: 20120706
  Transmission Date: 20120928
  Serious: Yes (Hospitalization)
  Sender: FDA-Public Use
  Company Number: DE-ROCHE-1058930

PATIENT
  Sex: Female
  Weight: 97 kg

DRUGS (10)
  1. AVASTIN [Suspect]
     Indication: BREAST CANCER
     Dosage: DOSE AND FREQUENCY AS PER PROTOCOL. LAST DOSE PRIOR TO SAE: 02/APR/2012
     Route: 042
     Dates: start: 20100307
  2. XELODA [Suspect]
     Indication: BREAST CANCER
     Dosage: DOSE: AS PER PROTOCOL. LAST DOSE PRIOR TO SAE: 06/APR/2012
     Route: 048
     Dates: start: 20100307
  3. TORSEMIDE [Concomitant]
     Dates: start: 20100920
  4. HELIXOR [Concomitant]
     Dosage: DAILY DOSE REPORTED AS 3X100 (UNIT WAS NOT LEGIBLE)
     Dates: start: 20100320
  5. METOCLOPRAMIDE DROPS [Concomitant]
     Dates: start: 20120312
  6. LEVOTHYROXINE SODIUM [Concomitant]
  7. ENOXAPARIN SODIUM [Concomitant]
     Dosage: DAILY DOSE REPORTED AS: 1500 X 3
     Dates: start: 20110426
  8. PANTOPRAZOLE [Concomitant]
     Dosage: DAILY DOSE REPORTED AS: 1-0-1
     Dates: start: 20100920
  9. BISOPROLOL FUMARATE [Concomitant]
  10. LISINOPRIL [Concomitant]

REACTIONS (1)
  - APPENDICITIS PERFORATED [None]
